FAERS Safety Report 9657148 (Version 1)
Quarter: 2013Q4

REPORT INFORMATION
  Report Type: Spontaneous
  Country: US (occurrence: US)
  Receive Date: 20131030
  Receipt Date: 20131030
  Transmission Date: 20140711
  Serious: No
  Sender: FDA-Public Use
  Company Number: US-PFIZER INC-2013306866

PATIENT
  Age: 85 Year
  Sex: Female
  Weight: 49.88 kg

DRUGS (4)
  1. VENLAFAXINE HCL [Suspect]
     Dosage: 37.5 MG, 1X/DAY
     Route: 048
  2. LIPITOR [Concomitant]
     Indication: BLOOD CHOLESTEROL INCREASED
     Dosage: UNK
  3. NEURONTIN [Concomitant]
     Dosage: 300 MG, UNK
  4. KLONOPIN [Concomitant]
     Dosage: UNK

REACTIONS (7)
  - Tremor [Unknown]
  - Crying [Unknown]
  - Grip strength decreased [Unknown]
  - Tremor [Unknown]
  - Activities of daily living impaired [Unknown]
  - Abdominal pain upper [Unknown]
  - Drug intolerance [Unknown]
